FAERS Safety Report 15238067 (Version 1)
Quarter: 2018Q3

REPORT INFORMATION
  Report Type: Spontaneous
  Country: AU (occurrence: AU)
  Receive Date: 20180803
  Receipt Date: 20180803
  Transmission Date: 20181010
  Serious: Yes (Other)
  Sender: FDA-Public Use
  Company Number: AU-PFIZER INC-2018311741

PATIENT
  Age: 48 Year
  Sex: Male

DRUGS (3)
  1. CODEINE [Suspect]
     Active Substance: CODEINE
  2. IBUPROFEN. [Suspect]
     Active Substance: IBUPROFEN
  3. NUROFEN /00109201/ [Suspect]
     Active Substance: IBUPROFEN

REACTIONS (4)
  - Small intestine ulcer [Unknown]
  - Coma [Unknown]
  - Sepsis [Unknown]
  - Drug abuse [Unknown]
